FAERS Safety Report 8144967-7 (Version None)
Quarter: 2012Q1

REPORT INFORMATION
  Report Type: 
  Country: None (occurrence: None)
  Receive Date: 20120217
  Receipt Date: 20120210
  Transmission Date: 20120608
  Serious: Yes (Other)
  Sender: FDA-Public Use
  Company Number: US-MERCK-1202USA02200

PATIENT
  Age: 49 Year
  Sex: Female
  Weight: 55 kg

DRUGS (11)
  1. CELEBREX [Concomitant]
     Route: 065
  2. VIOXX [Suspect]
     Route: 048
  3. PROAIR HFA [Concomitant]
     Indication: CHRONIC OBSTRUCTIVE PULMONARY DISEASE
     Route: 065
  4. HYDROCHLOROTHIAZIDE [Concomitant]
     Indication: HYPERTENSION
     Route: 048
  5. ALPRAZOLAM [Concomitant]
     Indication: STRESS
     Route: 065
  6. GABAPENTIN [Concomitant]
     Indication: NEUROPATHY PERIPHERAL
     Route: 065
  7. CITALOPRAM [Concomitant]
     Indication: NERVOUS SYSTEM DISORDER
     Route: 065
  8. NORVASC [Concomitant]
     Indication: HYPERTENSION
     Route: 048
     Dates: start: 20110101
  9. REMERON [Suspect]
     Route: 065
  10. ACETAMINOPHEN AND HYDROCODONE BITARTRATE [Concomitant]
     Indication: PAIN
     Route: 065
  11. PRINIVIL [Suspect]
     Indication: HYPERTENSION
     Route: 048

REACTIONS (5)
  - NEOPLASM MALIGNANT [None]
  - AORTIC OCCLUSION [None]
  - BLOOD POTASSIUM DECREASED [None]
  - DRUG ADMINISTRATION ERROR [None]
  - GASTRIC DISORDER [None]
